FAERS Safety Report 14726425 (Version 3)
Quarter: 2018Q2

REPORT INFORMATION
  Report Type: Spontaneous
  Country: US (occurrence: US)
  Receive Date: 20180406
  Receipt Date: 20180508
  Transmission Date: 20180711
  Serious: Yes (Other)
  Sender: FDA-Public Use
  Company Number: US-BEH-2018089352

PATIENT
  Age: 25 Year
  Sex: Female
  Weight: 97.51 kg

DRUGS (2)
  1. CINRYZE [Concomitant]
     Active Substance: HUMAN C1-ESTERASE INHIBITOR
     Indication: HEREDITARY ANGIOEDEMA
     Dosage: 1500 IU, EVERY 4 DAYS
     Route: 042
     Dates: start: 20180113
  2. BERINERT [Suspect]
     Active Substance: HUMAN C1-ESTERASE INHIBITOR
     Indication: HEREDITARY ANGIOEDEMA
     Dosage: 2000 IU, PRN EVERY DAY FOR ANGIOEDEMA SWELL
     Route: 042
     Dates: start: 20180322

REACTIONS (1)
  - No adverse event [Recovering/Resolving]

NARRATIVE: CASE EVENT DATE: 20180326
